FAERS Safety Report 6312324-1 (Version None)
Quarter: 2009Q3

REPORT INFORMATION
  Report Type: 
  Country: None (occurrence: None)
  Receive Date: 20090817
  Receipt Date: 20090803
  Transmission Date: 20100115
  Serious: Yes (Other)
  Sender: FDA-Public Use
  Company Number: DE-ROCHE-647703

PATIENT
  Age: 65 Year
  Sex: Female

DRUGS (6)
  1. RIBAVIRIN [Suspect]
     Indication: HEPATITIS C
     Route: 065
     Dates: start: 20020101
  2. RIBAVIRIN [Suspect]
     Route: 065
     Dates: start: 20040101
  3. RIBAVIRIN [Suspect]
     Route: 065
  4. PEG-INTERFERON ALFA NOS [Suspect]
     Indication: HEPATITIS C
     Route: 065
     Dates: start: 20020101
  5. PEG-INTERFERON ALFA NOS [Suspect]
     Route: 065
     Dates: start: 20040101
  6. PEG-INTRON [Suspect]
     Indication: HEPATITIS C
     Dosage: LOW DOSE MAINTENANCE THERAPY
     Route: 065
     Dates: end: 20080201

REACTIONS (2)
  - HEPATIC NEOPLASM MALIGNANT [None]
  - TREATMENT FAILURE [None]
